FAERS Safety Report 22735343 (Version 3)
Quarter: 2023Q4

REPORT INFORMATION
  Report Type: Spontaneous
  Country: US (occurrence: US)
  Receive Date: 20230721
  Receipt Date: 20231211
  Transmission Date: 20240109
  Serious: No
  Sender: FDA-Public Use
  Company Number: US-SA-SAC20230719000319

PATIENT
  Age: 19 Year
  Sex: Male

DRUGS (4)
  1. ELOCTATE [Suspect]
     Active Substance: EFMOROCTOCOG ALFA
     Indication: Haemorrhage
     Dosage: 2000 U (+/- 10%), QW
     Route: 042
  2. ELOCTATE [Suspect]
     Active Substance: EFMOROCTOCOG ALFA
     Indication: Haemorrhage
     Dosage: 2000 U (+/- 10%), QW
     Route: 042
  3. ELOCTATE [Suspect]
     Active Substance: EFMOROCTOCOG ALFA
     Dosage: 2000 U (+/- 10%), PRN (EVERY 24 HOURS AS NEEDED FOR BLEEDING EPISODES)
     Route: 042
  4. ELOCTATE [Suspect]
     Active Substance: EFMOROCTOCOG ALFA
     Dosage: 2000 U (+/- 10%), PRN (EVERY 24 HOURS AS NEEDED FOR BLEEDING EPISODES)
     Route: 042

REACTIONS (4)
  - Traumatic haemorrhage [Unknown]
  - Accident at work [Unknown]
  - Haemorrhage [Recovered/Resolved]
  - Intentional product misuse [Unknown]

NARRATIVE: CASE EVENT DATE: 20230701
